FAERS Safety Report 24819885 (Version 1)
Quarter: 2025Q1

REPORT INFORMATION
  Report Type: Spontaneous
  Country: US (occurrence: None)
  Receive Date: 20250108
  Receipt Date: 20250108
  Transmission Date: 20250409
  Serious: Yes (Other)
  Sender: FDA-CTU
  Company Number: None

PATIENT
  Age: 74 Year
  Sex: Female

DRUGS (15)
  1. AMBRISENTAN [Suspect]
     Active Substance: AMBRISENTAN
     Indication: Pulmonary hypertension
     Dosage: FREQUENCY : EVERY OTHER DAY;?
     Route: 048
     Dates: start: 20240912, end: 20241129
  2. AMBRISENTAN [Suspect]
     Active Substance: AMBRISENTAN
     Indication: Lung disorder
  3. AMBRISENTAN [Suspect]
     Active Substance: AMBRISENTAN
     Indication: Hypoxia
  4. TADALAFIL [Suspect]
     Active Substance: TADALAFIL
  5. FUROSEMIDE [Concomitant]
     Active Substance: FUROSEMIDE
  6. POTASSIUM CHLORIDE [Concomitant]
     Active Substance: POTASSIUM CHLORIDE
  7. JARDIANCE [Concomitant]
     Active Substance: EMPAGLIFLOZIN
  8. METOPROLOL [Concomitant]
     Active Substance: METOPROLOL
  9. METFORMIN [Concomitant]
     Active Substance: METFORMIN HYDROCHLORIDE
  10. ATORVASTATIN [Concomitant]
     Active Substance: ATORVASTATIN
  11. LOSARTAN [Concomitant]
     Active Substance: LOSARTAN
  12. DILTIAZEM [Concomitant]
     Active Substance: DILTIAZEM
  13. CETIRIZINE [Concomitant]
     Active Substance: CETIRIZINE HYDROCHLORIDE
  14. VITAMINS [Concomitant]
     Active Substance: VITAMINS
  15. VITAMIN D3 [Concomitant]
     Active Substance: CHOLECALCIFEROL

REACTIONS (3)
  - Pulmonary hypertension [None]
  - Weight increased [None]
  - Paradoxical drug reaction [None]

NARRATIVE: CASE EVENT DATE: 20241231
